FAERS Safety Report 8025278-7 (Version None)
Quarter: 2012Q1

REPORT INFORMATION
  Report Type: 
  Country: None (occurrence: None)
  Receive Date: 20120105
  Receipt Date: 20111227
  Transmission Date: 20120608
  Serious: Yes (Death)
  Sender: FDA-Public Use
  Company Number: US-JNJFOC-20111212441

PATIENT
  Age: 36 Year
  Sex: Male

DRUGS (6)
  1. ACETAMINOPHEN AND HYDROCODONE BITARTRATE [Suspect]
     Indication: ILL-DEFINED DISORDER
  2. DIPHENHYDRAMINE HCL [Suspect]
     Indication: ILL-DEFINED DISORDER
  3. MORPHINE [Suspect]
     Indication: ILL-DEFINED DISORDER
  4. ETHANOL [Suspect]
     Indication: ILL-DEFINED DISORDER
  5. ALPRAZOLAM [Suspect]
     Indication: ILL-DEFINED DISORDER
  6. DIPHENHYDRAMINE HCL [Suspect]

REACTIONS (3)
  - CARDIO-RESPIRATORY ARREST [None]
  - INTENTIONAL DRUG MISUSE [None]
  - TOXICITY TO VARIOUS AGENTS [None]
